FAERS Safety Report 6920779-4 (Version None)
Quarter: 2010Q3

REPORT INFORMATION
  Report Type: 
  Country: None (occurrence: None)
  Receive Date: 20100812
  Receipt Date: 20100805
  Transmission Date: 20110219
  Serious: Yes (Other)
  Sender: FDA-Public Use
  Company Number: AU-ASTRAZENECA-2010SE36611

PATIENT
  Age: 38 Year
  Sex: Male

DRUGS (2)
  1. QUETIAPINE [Suspect]
     Indication: PSYCHOTIC DISORDER
     Dates: start: 20050101
  2. QUETIAPINE [Suspect]
     Dates: start: 20060101

REACTIONS (2)
  - LEUKOPENIA [None]
  - VIRAL UPPER RESPIRATORY TRACT INFECTION [None]
